FAERS Safety Report 9387773 (Version 1)
Quarter: 2013Q3

REPORT INFORMATION
  Report Type: Spontaneous
  Country: GB (occurrence: None)
  Receive Date: 20130703
  Receipt Date: 20130703
  Transmission Date: 20140515
  Serious: Yes (Disabling)
  Sender: FDA-Public Use
  Company Number: GER/UKI/13/0030349

PATIENT
  Age: 61 Year
  Sex: Female
  Weight: 56 kg

DRUGS (20)
  1. LEVOFLOXAXIN [Suspect]
     Indication: INFECTION
     Route: 048
     Dates: start: 20130423, end: 20130502
  2. AMLODIPINE (AMLODIPINE) [Concomitant]
  3. CLARITHROMYCIN (CLARITHROMYCIN) [Concomitant]
  4. DIAZEPAM (DIAZEPAM) [Concomitant]
  5. FIXOTIDE (FLUTICASONE PROPIONATE) [Concomitant]
  6. LACTULOSE (LATULOSE) [Concomitant]
  7. LANSOPRAOLE (LANSOPRAZOLE) [Concomitant]
  8. MELOXICAM (MEXLOXICAM) [Concomitant]
  9. METOCLOPRAMIDE (METOCLOPRAMIDE) [Concomitant]
  10. MICONAZOLE (MICONAZOLE) [Concomitant]
  11. NYSATATIN (NYSTATIN) [Concomitant]
  12. OXYCODONE (OXYCODONE) [Concomitant]
  13. PARACETAMOL (PARACETAMOL) [Concomitant]
  14. PREDNISOLONE (PREDNISOLONE) [Concomitant]
  15. PREMARIN (ESTROGENS CONJUGATED) [Concomitant]
  16. PRO D3 (COLECALCIFEROL) [Concomitant]
  17. RAMIPRIL (RAMIPRIL) [Concomitant]
  18. SALBUTAMOL (SALBUTAMOL) [Concomitant]
  19. TIOTROPIUM BROMIDE (TIOTROPIUM BROMIDE) [Concomitant]
  20. ZOLPIDEM (ZOLPIDEM) [Concomitant]

REACTIONS (3)
  - Arthralgia [None]
  - Muscle atrophy [None]
  - Musculoskeletal pain [None]
